FAERS Safety Report 11860337 (Version 1)
Quarter: 2015Q4

REPORT INFORMATION
  Report Type: Spontaneous
  Country: CH (occurrence: CH)
  Receive Date: 20151222
  Receipt Date: 20151222
  Transmission Date: 20160305
  Serious: Yes (Other)
  Sender: FDA-Public Use
  Company Number: CH-LPDUSPRD-20151042

PATIENT
  Age: 42 Year
  Sex: Female
  Weight: 63 kg

DRUGS (1)
  1. FERINJECT [Suspect]
     Active Substance: FERRIC CARBOXYMALTOSE
     Dosage: 1000MG IN 250 ML NACL
     Route: 041
     Dates: start: 20150827, end: 20150827

REACTIONS (4)
  - Headache [Unknown]
  - Vomiting [Unknown]
  - Chills [Unknown]
  - Fatigue [Unknown]

NARRATIVE: CASE EVENT DATE: 20150829
